FAERS Safety Report 23647633 (Version 1)
Quarter: 2024Q1

REPORT INFORMATION
  Report Type: Spontaneous
  Country: AU (occurrence: AU)
  Receive Date: 20240319
  Receipt Date: 20240319
  Transmission Date: 20240410
  Serious: Yes (Other)
  Sender: FDA-Public Use
  Company Number: AU-PFIZER INC-PV202400035453

PATIENT
  Age: 51 Year
  Sex: Male

DRUGS (9)
  1. OXALIPLATIN [Suspect]
     Active Substance: OXALIPLATIN
     Indication: Colon cancer stage III
     Dosage: UNK, CYCLIC
     Dates: start: 200805, end: 200810
  2. LEUCOVORIN [Suspect]
     Active Substance: LEUCOVORIN\LEUCOVORIN CALCIUM
     Indication: Colon cancer stage III
     Dosage: UNK, CYCLIC
     Dates: start: 200805, end: 200810
  3. LEUCOVORIN [Suspect]
     Active Substance: LEUCOVORIN\LEUCOVORIN CALCIUM
     Dosage: UNK UNK, CYCLIC
     Dates: end: 200912
  4. IRINOTECAN HYDROCHLORIDE [Suspect]
     Active Substance: IRINOTECAN HYDROCHLORIDE
     Indication: Colon cancer stage III
     Dosage: UNK UNK, CYCLIC
     Dates: end: 200912
  5. FLUOROURACIL [Suspect]
     Active Substance: FLUOROURACIL
     Indication: Colon cancer stage III
     Dosage: UNK, CYCLIC
     Dates: start: 200805, end: 200810
  6. FLUOROURACIL [Suspect]
     Active Substance: FLUOROURACIL
     Dosage: UNK UNK, CYCLIC
     Dates: end: 200912
  7. BEVACIZUMAB [Suspect]
     Active Substance: BEVACIZUMAB
     Indication: Colon cancer stage III
     Dosage: UNK, CYCLIC
     Dates: start: 200805, end: 200810
  8. CEDIRANIB [Suspect]
     Active Substance: CEDIRANIB
     Indication: Colon cancer stage III
     Dosage: UNK, CYCLIC
     Dates: start: 200805, end: 200810
  9. TREBANANIB [Suspect]
     Active Substance: TREBANANIB
     Indication: Colon cancer stage III
     Dosage: UNK, CYCLIC (6 CYCLES)
     Dates: end: 200909

REACTIONS (1)
  - Guillain-Barre syndrome [Recovering/Resolving]
